FAERS Safety Report 9373062 (Version 2)
Quarter: 2013Q3

REPORT INFORMATION
  Report Type: Spontaneous
  Country: BR (occurrence: BR)
  Receive Date: 20130627
  Receipt Date: 20130704
  Transmission Date: 20140515
  Serious: Yes (Other)
  Sender: FDA-Public Use
  Company Number: BR-ASTRAZENECA-2013SE48355

PATIENT
  Age: 73 Year
  Sex: Male
  Weight: 102 kg

DRUGS (8)
  1. ATACAND HCT [Suspect]
     Indication: HYPERTENSION
     Dosage: 16/ 12.5 MG, DAILY
     Route: 048
     Dates: start: 2008
  2. CRESTOR [Suspect]
     Indication: BLOOD CHOLESTEROL INCREASED
     Route: 048
     Dates: start: 2008
  3. CRESTOR [Suspect]
     Indication: BLOOD TRIGLYCERIDES INCREASED
     Route: 048
     Dates: start: 2008
  4. BRILINTA [Suspect]
     Indication: CORONARY ARTERY OCCLUSION
     Route: 048
     Dates: start: 20130623
  5. SINGULAIR [Concomitant]
  6. SERETIDE [Concomitant]
  7. ASPIRIN [Concomitant]
  8. LIPIDIL [Concomitant]

REACTIONS (2)
  - Coronary artery occlusion [Not Recovered/Not Resolved]
  - Off label use [Not Recovered/Not Resolved]
